FAERS Safety Report 19463888 (Version 2)
Quarter: 2022Q2

REPORT INFORMATION
  Report Type: Spontaneous
  Country: US (occurrence: US)
  Receive Date: 20210625
  Receipt Date: 20220408
  Transmission Date: 20220720
  Serious: Yes (Other)
  Sender: FDA-Public Use
  Company Number: US-SA-SAC20210622000181

PATIENT
  Age: 40 Year
  Sex: Male

DRUGS (3)
  1. AUBAGIO [Suspect]
     Active Substance: TERIFLUNOMIDE
     Indication: Multiple sclerosis
     Dosage: UNK
     Route: 048
     Dates: start: 202101
  2. CORTISONE [Concomitant]
     Active Substance: CORTISONE
     Indication: Rash
  3. CORTISONE [Concomitant]
     Active Substance: CORTISONE
     Indication: Rash pruritic

REACTIONS (3)
  - Multiple sclerosis relapse [Unknown]
  - Rash [Not Recovered/Not Resolved]
  - Rash pruritic [Not Recovered/Not Resolved]

NARRATIVE: CASE EVENT DATE: 20210501
